FAERS Safety Report 5657800-X (Version None)
Quarter: 2008Q1

REPORT INFORMATION
  Report Type: 
  Country: None (occurrence: None)
  Receive Date: 20080305
  Receipt Date: 20080218
  Transmission Date: 20080703
  Serious: Yes (Other)
  Sender: FDA-Public Use
  Company Number: 2008S1002954

PATIENT
  Age: 33 Year
  Sex: Male

DRUGS (2)
  1. IBUPROFEN [Suspect]
     Indication: DRUG USE FOR UNKNOWN INDICATION
     Dosage: 600 MG; 30; ORAL
     Route: 048
  2. DILTIAZEM [Suspect]
     Dosage: 90 MG; 49; ORAL
     Route: 048

REACTIONS (5)
  - AGITATION [None]
  - ATRIOVENTRICULAR BLOCK COMPLETE [None]
  - FEELING HOT [None]
  - MULTIPLE DRUG OVERDOSE INTENTIONAL [None]
  - VOMITING [None]
